FAERS Safety Report 4569187-4 (Version None)
Quarter: 2005Q1

REPORT INFORMATION
  Report Type: 
  Country: None (occurrence: None)
  Receive Date: 20050126
  Receipt Date: 20050126
  Transmission Date: 20050727
  Serious: Yes (Other)
  Sender: FDA-Public Use
  Company Number: None

PATIENT
  Age: 60 Year
  Sex: Male
  Weight: 110.7 kg

DRUGS (1)
  1. BACITRACIN [Suspect]
     Indication: CONJUNCTIVITIS
     Dosage: THIN RIB, BOTH EYE, BOTH EYE
     Dates: start: 20040606, end: 20040609

REACTIONS (4)
  - CLOSTRIDIUM COLITIS [None]
  - EYE PRURITUS [None]
  - EYE SWELLING [None]
  - OCULAR HYPERAEMIA [None]
